FAERS Safety Report 4277171-3 (Version None)
Quarter: 2004Q1

REPORT INFORMATION
  Report Type: 
  Country: None (occurrence: None)
  Receive Date: 20040120
  Receipt Date: 20040120
  Transmission Date: 20041129
  Serious: Yes (Hospitalization)
  Sender: FDA-Public Use
  Company Number: None

PATIENT
  Age: 74 Year
  Sex: Male
  Weight: 83.5 kg

DRUGS (6)
  1. SIMVASTATIN [Suspect]
  2. HCTZ 25MG/TRIAMTERENE 37.5MG [Concomitant]
  3. LANSOPRAZOLE [Concomitant]
  4. TERAZOSIN HCL [Concomitant]
  5. ALBUTEROL/IPRATROPIUM INHALER [Concomitant]
  6. CEPHALEXIN [Concomitant]

REACTIONS (1)
  - RHABDOMYOLYSIS [None]
